FAERS Safety Report 9551906 (Version 1)
Quarter: 2013Q3

REPORT INFORMATION
  Report Type: Spontaneous
  Country: US (occurrence: None)
  Receive Date: 20130923
  Receipt Date: 20130923
  Transmission Date: 20140515
  Serious: Yes (Disabling)
  Sender: FDA-Public Use
  Company Number: None

PATIENT
  Age: 65 Year
  Sex: Female

DRUGS (5)
  1. AFINITOR 5MG NOVARTIS [Suspect]
     Indication: RENAL CANCER METASTATIC
     Dosage: 1 YEAR OF ALL AFINITOR
     Route: 048
  2. AMBIEN [Concomitant]
  3. DILAUDID [Concomitant]
  4. LISINOPRIL [Concomitant]
  5. MOTRIN [Concomitant]

REACTIONS (5)
  - Chest pain [None]
  - Hypoaesthesia oral [None]
  - Hypoaesthesia oral [None]
  - Diplopia [None]
  - Strabismus [None]
